FAERS Safety Report 10052783 (Version 2)
Quarter: 2014Q2

REPORT INFORMATION
  Report Type: Spontaneous
  Country: US (occurrence: US)
  Receive Date: 20140402
  Receipt Date: 20140412
  Transmission Date: 20141212
  Serious: No
  Sender: FDA-Public Use
  Company Number: US-009507513-1403USA012413

PATIENT
  Age: 34 Year
  Sex: Female
  Weight: 83.9 kg

DRUGS (2)
  1. IMPLANON [Suspect]
     Indication: CONTRACEPTION
     Dosage: UNK
     Dates: start: 201211
  2. IMPLANON [Suspect]
     Dosage: UNK
     Route: 059
     Dates: start: 200911, end: 201211

REACTIONS (4)
  - Device difficult to use [Unknown]
  - Implant site pain [Unknown]
  - Medical device complication [Unknown]
  - Device deployment issue [Unknown]
